FAERS Safety Report 8285296-0 (Version None)
Quarter: 2012Q2

REPORT INFORMATION
  Report Type: 
  Country: None (occurrence: None)
  Receive Date: 20120413
  Receipt Date: 20110511
  Transmission Date: 20120825
  Serious: No
  Sender: FDA-Public Use
  Company Number: US-ASTRAZENECA-2010SE21438

PATIENT
  Age: 50 Year
  Sex: Female

DRUGS (2)
  1. CRESTOR [Suspect]
     Route: 048
  2. NEXIUM [Suspect]
     Route: 048

REACTIONS (9)
  - PANIC ATTACK [None]
  - DYSPHAGIA [None]
  - RHINORRHOEA [None]
  - ANXIETY [None]
  - COUGH [None]
  - APHONIA [None]
  - GASTROOESOPHAGEAL REFLUX DISEASE [None]
  - DRUG DOSE OMISSION [None]
  - MULTIPLE ALLERGIES [None]
